FAERS Safety Report 9184851 (Version 1)
Quarter: 2013Q1

REPORT INFORMATION
  Report Type: Spontaneous
  Country: US (occurrence: US)
  Receive Date: 20130325
  Receipt Date: 20130325
  Transmission Date: 20140127
  Serious: Yes (Other)
  Sender: FDA-Public Use
  Company Number: US-BRISTOL-MYERS SQUIBB COMPANY-16500100

PATIENT
  Age: 41 Year
  Sex: Female

DRUGS (1)
  1. ERBITUX [Suspect]

REACTIONS (1)
  - General physical health deterioration [Unknown]
